FAERS Safety Report 13858426 (Version 1)
Quarter: 2017Q3

REPORT INFORMATION
  Report Type: Spontaneous
  Country: US (occurrence: US)
  Receive Date: 20170811
  Receipt Date: 20170811
  Transmission Date: 20171127
  Serious: Yes (Other)
  Sender: FDA-Public Use
  Company Number: US-TAKEDA-2017TUS016358

PATIENT
  Age: 36 Year
  Sex: Female
  Weight: 101.13 kg

DRUGS (1)
  1. ENTYVIO [Suspect]
     Active Substance: VEDOLIZUMAB
     Indication: COLITIS ULCERATIVE
     Dosage: 300 MG, UNK
     Route: 042
     Dates: start: 201702

REACTIONS (7)
  - Erythema [Recovering/Resolving]
  - Cellulitis [Not Recovered/Not Resolved]
  - Arthralgia [Recovering/Resolving]
  - Joint swelling [Not Recovered/Not Resolved]
  - Joint effusion [Recovered/Resolved]
  - Blood uric acid increased [Unknown]
  - Cholangitis sclerosing [Unknown]

NARRATIVE: CASE EVENT DATE: 201704
